FAERS Safety Report 18653387 (Version 1)
Quarter: 2020Q4

REPORT INFORMATION
  Report Type: Spontaneous
  Country: US (occurrence: US)
  Receive Date: 20201223
  Receipt Date: 20201223
  Transmission Date: 20210114
  Serious: Yes (Hospitalization, Other)
  Sender: FDA-Public Use
  Company Number: US-SA-2020SA361618

PATIENT

DRUGS (1)
  1. DIPHENHYDRAMINE. [Suspect]
     Active Substance: DIPHENHYDRAMINE
     Indication: SUICIDE ATTEMPT
     Route: 048

REACTIONS (7)
  - Anxiety [Unknown]
  - Generalised tonic-clonic seizure [Recovered/Resolved]
  - Cardiotoxicity [Recovering/Resolving]
  - Intentional overdose [Unknown]
  - Tachycardia [Recovered/Resolved]
  - Hyperhidrosis [Unknown]
  - Loss of consciousness [Recovered/Resolved]
